FAERS Safety Report 5330688-2 (Version None)
Quarter: 2007Q2

REPORT INFORMATION
  Report Type: 
  Country: None (occurrence: None)
  Receive Date: 20070522
  Receipt Date: 20070515
  Transmission Date: 20071010
  Serious: Yes (Life-Threatening, Hospitalization)
  Sender: FDA-Public Use
  Company Number: PHBS2007JP07823

PATIENT
  Age: 49 Year
  Sex: Female

DRUGS (4)
  1. VOLTAREN [Suspect]
     Indication: HERPES ZOSTER
     Dosage: UNK, UNK
     Route: 048
     Dates: start: 20070507, end: 20070507
  2. VALTREX [Suspect]
     Indication: HERPES ZOSTER
     Dosage: UNK, UNK
     Route: 048
     Dates: start: 20070507
  3. NEUER [Concomitant]
     Route: 048
     Dates: start: 20070507, end: 20070507
  4. CYANOCOBALAMIN [Concomitant]
     Route: 048
     Dates: start: 20070507, end: 20070507

REACTIONS (6)
  - ANAPHYLACTIC SHOCK [None]
  - BLOOD GLUCOSE INCREASED [None]
  - DRUG INTERACTION [None]
  - DYSPNOEA [None]
  - FEELING HOT [None]
  - STRIDOR [None]
